FAERS Safety Report 22331325 (Version 1)
Quarter: 2023Q2

REPORT INFORMATION
  Report Type: Spontaneous
  Country: US (occurrence: None)
  Receive Date: 20230515
  Receipt Date: 20230515
  Transmission Date: 20230721
  Serious: Yes (Disabling)
  Sender: FDA-Public Use
  Company Number: None

PATIENT
  Sex: Female

DRUGS (2)
  1. MIRENA [Suspect]
     Active Substance: LEVONORGESTREL
  2. TALTZ [Concomitant]
     Active Substance: IXEKIZUMAB

REACTIONS (3)
  - Haemangioma of liver [None]
  - Abdominal distension [None]
  - Abdominal distension [None]
